FAERS Safety Report 4819433-4 (Version None)
Quarter: 2005Q4

REPORT INFORMATION
  Report Type: 
  Country: None (occurrence: None)
  Receive Date: 20051012
  Receipt Date: 20050822
  Transmission Date: 20060501
  Serious: Yes (Other)
  Sender: FDA-Public Use
  Company Number: A03200502602

PATIENT
  Age: 71 Year
  Sex: Male
  Weight: 74.3899 kg

DRUGS (5)
  1. UROXATRAL [Suspect]
     Indication: PROSTATE EXAMINATION ABNORMAL
     Dosage: 10 MG OD - ORAL
     Route: 048
     Dates: start: 20050801, end: 20050801
  2. ATENOLOL [Concomitant]
  3. METFORMIN [Concomitant]
  4. ATORVASTATIN [Concomitant]
  5. LISINOPRIL [Concomitant]

REACTIONS (4)
  - HEART RATE INCREASED [None]
  - HYPOTENSION [None]
  - INSOMNIA [None]
  - PALPITATIONS [None]
